FAERS Safety Report 5629836-6 (Version None)
Quarter: 2008Q1

REPORT INFORMATION
  Report Type: 
  Country: None (occurrence: None)
  Receive Date: 20080218
  Receipt Date: 20080214
  Transmission Date: 20080703
  Serious: Yes (Death, Disabling, Other)
  Sender: FDA-Public Use
  Company Number: PHBS2008IT02135

PATIENT
  Age: 64 Year
  Sex: Female

DRUGS (1)
  1. ZOMETA [Suspect]
     Indication: METASTASES TO BONE
     Route: 065
     Dates: start: 20040101, end: 20050101

REACTIONS (7)
  - DEATH [None]
  - INFECTION [None]
  - OSTEITIS [None]
  - OSTEOLYSIS [None]
  - PAIN [None]
  - TOOTH EXTRACTION [None]
  - X-RAY ABNORMAL [None]
